FAERS Safety Report 18055206 (Version 1)
Quarter: 2020Q3

REPORT INFORMATION
  Report Type: Spontaneous
  Country: US (occurrence: US)
  Receive Date: 20200722
  Receipt Date: 20200722
  Transmission Date: 20201103
  Serious: Yes (Life-Threatening, Hospitalization)
  Sender: FDA-Public Use
  Company Number: US-MYLANLABS-2020M1065858

PATIENT
  Age: 26 Year
  Sex: Male

DRUGS (5)
  1. LIOTHYRONINE [Suspect]
     Active Substance: LIOTHYRONINE
     Indication: SUPPLEMENTATION THERAPY
     Dosage: 25 MICROGRAM, QD
     Route: 048
  2. STANOZOLOL [Suspect]
     Active Substance: STANOZOLOL
     Indication: SUPPLEMENTATION THERAPY
     Dosage: 2 MILLILITER, QW
     Route: 065
  3. TESTOSTERONE. [Suspect]
     Active Substance: TESTOSTERONE
     Indication: SUPPLEMENTATION THERAPY
     Dosage: 1 MILLILITER, QW
     Route: 065
  4. WHEY PROTEIN [Suspect]
     Active Substance: WHEY
     Indication: SUPPLEMENTATION THERAPY
     Dosage: WHEY PROTEINS....
     Route: 065
  5. GLUTAMINE [Suspect]
     Active Substance: GLUTAMINE
     Indication: SUPPLEMENTATION THERAPY
     Dosage: L?GLUTAMINE POWDER....
     Route: 065

REACTIONS (5)
  - Drug abuse [Recovering/Resolving]
  - Myocardial infarction [Recovering/Resolving]
  - Coronary artery thrombosis [Recovering/Resolving]
  - Thrombocytosis [Unknown]
  - Overdose [Recovering/Resolving]
